FAERS Safety Report 10752246 (Version 1)
Quarter: 2015Q1

REPORT INFORMATION
  Report Type: Report from Study
  Country: AU (occurrence: AU)
  Receive Date: 20150130
  Receipt Date: 20150130
  Transmission Date: 20150721
  Serious: Yes (Hospitalization)
  Sender: FDA-Public Use
  Company Number: AU-JNJFOC-20150112095

PATIENT
  Age: 63 Year
  Sex: Male
  Weight: 124.8 kg

DRUGS (1)
  1. STELARA [Suspect]
     Active Substance: USTEKINUMAB
     Indication: PSORIASIS
     Route: 058
     Dates: start: 20100717

REACTIONS (3)
  - Osteomyelitis [Not Recovered/Not Resolved]
  - Leg amputation [Unknown]
  - Toe amputation [Unknown]

NARRATIVE: CASE EVENT DATE: 2011
